FAERS Safety Report 11833316 (Version 1)
Quarter: 2015Q4

REPORT INFORMATION
  Report Type: Spontaneous
  Country: US (occurrence: US)
  Receive Date: 20151214
  Receipt Date: 20151214
  Transmission Date: 20160305
  Serious: No
  Sender: FDA-Public Use
  Company Number: US-PERRIGO-15US002740

PATIENT
  Age: 50 Year
  Sex: Female
  Weight: 91.61 kg

DRUGS (2)
  1. MINOXIDIL. [Suspect]
     Active Substance: MINOXIDIL
     Indication: ALOPECIA
     Dosage: 1 ML, BID
     Route: 061
     Dates: start: 20150228, end: 20150302
  2. NATURE^S OWN NATURAL NUTRITION HAIR, SKIN + N [Concomitant]
     Indication: ALOPECIA
     Dosage: UNK
     Route: 048
     Dates: start: 201408

REACTIONS (1)
  - Vitreous floaters [Recovering/Resolving]

NARRATIVE: CASE EVENT DATE: 20150302
